FAERS Safety Report 10021284 (Version 1)
Quarter: 2014Q1

REPORT INFORMATION
  Report Type: Spontaneous
  Country: US (occurrence: US)
  Receive Date: 20140319
  Receipt Date: 20140319
  Transmission Date: 20141002
  Serious: Yes (Other)
  Sender: FDA-Public Use
  Company Number: US-ASTRAZENECA-2014SE17539

PATIENT
  Age: 65 Year
  Sex: Female
  Weight: 77.6 kg

DRUGS (4)
  1. CHOLESTEROL MEDICATION [Suspect]
     Indication: BLOOD CHOLESTEROL ABNORMAL
  2. PAIN MEDICATION (UNSPECIFIED) [Concomitant]
     Indication: WOUND COMPLICATION
  3. NEXIUM [Suspect]
     Indication: GASTROOESOPHAGEAL REFLUX DISEASE
     Route: 048
  4. NEXIUM [Suspect]
     Indication: GASTROOESOPHAGEAL REFLUX DISEASE
     Route: 048

REACTIONS (12)
  - Gastric disorder [Unknown]
  - Blood cholesterol increased [Unknown]
  - Oesophageal disorder [Unknown]
  - Gastrooesophageal reflux disease [Unknown]
  - Condition aggravated [Unknown]
  - Dizziness [Unknown]
  - Eructation [Unknown]
  - Vomiting [Unknown]
  - Headache [Unknown]
  - Myalgia [Unknown]
  - Intentional drug misuse [Unknown]
  - Off label use [Unknown]
